FAERS Safety Report 20033886 (Version 1)
Quarter: 2021Q4

REPORT INFORMATION
  Report Type: Spontaneous
  Country: US (occurrence: US)
  Receive Date: 20211104
  Receipt Date: 20211104
  Transmission Date: 20220303
  Serious: No
  Sender: FDA-Public Use
  Company Number: US-PERRIGO-20US018691

PATIENT

DRUGS (1)
  1. DOXYLAMINE SUCCINATE [Suspect]
     Active Substance: DOXYLAMINE SUCCINATE
     Indication: Product used for unknown indication
     Dosage: 25 MG, SINGLE
     Route: 048
     Dates: start: 202012, end: 202012

REACTIONS (10)
  - Hypnagogic hallucination [Unknown]
  - Hot flush [Unknown]
  - Feeling cold [Unknown]
  - Tremor [Unknown]
  - Asthenopia [Unknown]
  - Nightmare [Unknown]
  - Headache [Unknown]
  - Fatigue [Unknown]
  - Irritability [Unknown]
  - Insomnia [Unknown]

NARRATIVE: CASE EVENT DATE: 20201201
